FAERS Safety Report 5569010-5 (Version None)
Quarter: 2007Q4

REPORT INFORMATION
  Report Type: 
  Country: None (occurrence: None)
  Receive Date: 20071220
  Receipt Date: 20070510
  Transmission Date: 20080405
  Serious: No
  Sender: FDA-Public Use
  Company Number: A0650802A

PATIENT
  Age: 82 Year
  Sex: Male

DRUGS (5)
  1. AVODART [Suspect]
     Indication: BENIGN PROSTATIC HYPERPLASIA
     Dosage: .5MG PER DAY
     Route: 048
     Dates: start: 20060101
  2. COREG [Suspect]
     Indication: DRUG USE FOR UNKNOWN INDICATION
     Dosage: 3.125MG TWICE PER DAY
     Route: 048
     Dates: start: 20070901
  3. ALDACTONE [Concomitant]
  4. LASIX [Concomitant]
  5. ZOCOR [Concomitant]

REACTIONS (3)
  - BREAST ENLARGEMENT [None]
  - FATIGUE [None]
  - PAIN [None]
